FAERS Safety Report 25275468 (Version 1)
Quarter: 2025Q2

REPORT INFORMATION
  Report Type: Spontaneous
  Country: US (occurrence: US)
  Receive Date: 20250506
  Receipt Date: 20250506
  Transmission Date: 20250717
  Serious: No
  Sender: ALEXION PHARMACEUTICALS
  Company Number: US-AstraZeneca-CH-00862839AP

PATIENT
  Age: 64 Year

DRUGS (1)
  1. BREZTRI [Suspect]
     Active Substance: BUDESONIDE\FORMOTEROL\GLYCOPYRROLATE
     Route: 065

REACTIONS (8)
  - Incorrect dose administered [Unknown]
  - Product dose omission issue [Unknown]
  - Product cleaning inadequate [Unknown]
  - Dyspnoea [Unknown]
  - Productive cough [Unknown]
  - Feeling abnormal [Unknown]
  - Cough [Unknown]
  - Wrong product stored [Unknown]
